FAERS Safety Report 18845167 (Version 1)
Quarter: 2021Q1

REPORT INFORMATION
  Report Type: Spontaneous
  Country: CA (occurrence: CA)
  Receive Date: 20210204
  Receipt Date: 20210204
  Transmission Date: 20210419
  Serious: Yes (Other)
  Sender: FDA-Public Use
  Company Number: CA-ABBVIE-20K-028-3328737-00

PATIENT
  Age: 53 Year
  Sex: Female
  Weight: 46 kg

DRUGS (13)
  1. PREDNISONE. [Concomitant]
     Active Substance: PREDNISONE
     Dosage: 30?40 MG AS NEEDED
  2. AZATHIOPRINE. [Concomitant]
     Active Substance: AZATHIOPRINE
     Indication: PRODUCT USED FOR UNKNOWN INDICATION
     Dosage: OD WITH WEEKLY
     Route: 048
  3. XELJANZ [Concomitant]
     Active Substance: TOFACITINIB CITRATE
     Route: 048
     Dates: start: 20191001
  4. INFLECTRA [Concomitant]
     Active Substance: INFLIXIMAB-DYYB
     Indication: COLITIS ULCERATIVE
     Dosage: 0, 2, 6, THEN EVERY 8 WEEKS
     Route: 042
  5. PENTASA [Suspect]
     Active Substance: MESALAMINE
     Indication: PRODUCT USED FOR UNKNOWN INDICATION
     Route: 065
  6. HUMIRA [Suspect]
     Active Substance: ADALIMUMAB
     Indication: COLITIS ULCERATIVE
     Route: 058
     Dates: start: 201812
  7. XELJANZ [Concomitant]
     Active Substance: TOFACITINIB CITRATE
     Indication: COLITIS ULCERATIVE
     Route: 048
     Dates: start: 20190711, end: 20191001
  8. PREDNISONE. [Concomitant]
     Active Substance: PREDNISONE
     Indication: PRODUCT USED FOR UNKNOWN INDICATION
     Dosage: 30?40 MG  TAPERING
  9. INFLIXIMAB [Concomitant]
     Active Substance: INFLIXIMAB
     Indication: COLITIS ULCERATIVE
     Route: 042
  10. MESALAMINE. [Suspect]
     Active Substance: MESALAMINE
     Indication: COLITIS ULCERATIVE
     Route: 065
  11. PREDNISONE. [Concomitant]
     Active Substance: PREDNISONE
     Indication: PRODUCT USED FOR UNKNOWN INDICATION
  12. PANTOPRAZOLE [Concomitant]
     Active Substance: PANTOPRAZOLE
     Indication: PRODUCT USED FOR UNKNOWN INDICATION
  13. ENTYVIO [Suspect]
     Active Substance: VEDOLIZUMAB
     Indication: COLITIS ULCERATIVE
     Dosage: EVERY FOUR?WEEKS WITH A HIGHER FREQUENCY
     Route: 065
     Dates: start: 201904

REACTIONS (12)
  - Bowel movement irregularity [Recovered/Resolved]
  - Haematochezia [Recovered/Resolved]
  - Diarrhoea [Recovered/Resolved]
  - Coagulopathy [Recovered/Resolved]
  - Inflammation [Recovered/Resolved]
  - Cytomegalovirus infection [Recovered/Resolved]
  - Colitis ulcerative [Recovered/Resolved]
  - Drug ineffective [Recovered/Resolved]
  - Coagulopathy [Unknown]
  - Haematochezia [Unknown]
  - Drug ineffective [Unknown]
  - Diverticulum [Recovered/Resolved]
